FAERS Safety Report 8976431 (Version 1)
Quarter: 2012Q4

REPORT INFORMATION
  Report Type: 
  Country: US (occurrence: US)
  Receive Date: 20121219
  Receipt Date: 20121219
  Transmission Date: 20130627
  Serious: No
  Sender: FDA-Public Use
  Company Number: US-AMGEN-USASP2012063091

PATIENT
  Sex: Female

DRUGS (2)
  1. PROLIA [Suspect]
     Indication: OSTEOPOROSIS POSTMENOPAUSAL
     Dosage: UNK UNK, q6mo
     Dates: start: 201110
  2. CALTRATE WITH VITAMIN D [Concomitant]
     Dosage: UNK

REACTIONS (8)
  - Pruritus [Unknown]
  - Local swelling [Unknown]
  - Rash pruritic [Unknown]
  - Dry skin [Unknown]
  - Ear infection [Unknown]
  - Back pain [Unknown]
  - Myalgia [Unknown]
  - Pain in extremity [Unknown]
